FAERS Safety Report 10442411 (Version 2)
Quarter: 2014Q4

REPORT INFORMATION
  Report Type: Spontaneous
  Country: US (occurrence: None)
  Receive Date: 20140908
  Receipt Date: 20141008
  Transmission Date: 20150528
  Serious: Yes (Other)
  Sender: FDA-Public Use
  Company Number: 2014JUB00111

PATIENT
  Age: 78 Year
  Sex: Male
  Weight: 113.4 kg

DRUGS (5)
  1. ATORVASTATIN [Concomitant]
     Active Substance: ATORVASTATIN
  2. CARVEDILOL. [Concomitant]
     Active Substance: CARVEDILOL
  3. LAMOTRIGINE. [Suspect]
     Active Substance: LAMOTRIGINE
     Indication: EPILEPSY
     Route: 048
     Dates: start: 20140107, end: 2014
  4. AMIODARONE [Concomitant]
     Active Substance: AMIODARONE
  5. LEVOTHYROXINE [Concomitant]
     Active Substance: LEVOTHYROXINE

REACTIONS (9)
  - Disorientation [None]
  - Dizziness [None]
  - Back pain [None]
  - Hot flush [None]
  - Vision blurred [None]
  - Fatigue [None]
  - Fall [None]
  - Blood pressure decreased [None]
  - Prostate cancer [None]

NARRATIVE: CASE EVENT DATE: 20140107
